FAERS Safety Report 9014178 (Version 3)
Quarter: 2013Q1

REPORT INFORMATION
  Report Type: Spontaneous
  Country: JP (occurrence: JP)
  Receive Date: 20130115
  Receipt Date: 20130131
  Transmission Date: 20140127
  Serious: Yes (Hospitalization)
  Sender: FDA-Public Use
  Company Number: PHHY2012JP117831

PATIENT
  Age: 71 Year
  Sex: Male
  Weight: 76 kg

DRUGS (9)
  1. EQUA [Suspect]
     Indication: DIABETES MELLITUS
     Dosage: 100 MG, DAILY IN TWO DIVIDED DOSE
     Route: 048
     Dates: start: 20120802, end: 20121107
  2. FUROSEMIDE [Suspect]
     Indication: CARDIAC FAILURE
     Dosage: 20 MG, DAILY
     Route: 048
     Dates: start: 20120723
  3. WARFARIN [Suspect]
     Indication: ATRIAL FIBRILLATION
     Dosage: 1.5 MG, DAILY
     Route: 048
     Dates: start: 20120720
  4. BLOPRESS [Suspect]
     Indication: HYPERTENSION
     Dosage: 2 MG, DAILY
     Route: 048
     Dates: start: 20120721
  5. ARTIST [Suspect]
     Indication: CARDIAC FAILURE
     Dosage: 5 MG, DAILY
     Route: 048
     Dates: start: 20120720
  6. CRESTOR [Suspect]
     Indication: DYSLIPIDAEMIA
     Dosage: 2.5 MG,DAILY
     Route: 048
     Dates: start: 20120720
  7. ALDACTONE A [Suspect]
     Indication: CARDIAC FAILURE
     Dosage: 25 MG, DAILY
     Route: 048
     Dates: start: 20120720
  8. PARIET [Suspect]
     Indication: PROPHYLAXIS AGAINST GASTROINTESTINAL ULCER
     Dosage: 10 MG, DAILY
     Route: 048
     Dates: start: 20120829
  9. BUFERIN [Suspect]
     Indication: CORONARY ARTERY STENOSIS
     Dosage: 81 MG, DAILY
     Route: 048
     Dates: start: 20120801

REACTIONS (2)
  - Interstitial lung disease [Recovering/Resolving]
  - Hypoxia [Unknown]
